FAERS Safety Report 22140955 (Version 1)
Quarter: 2023Q1

REPORT INFORMATION
  Report Type: Spontaneous
  Country: US (occurrence: None)
  Receive Date: 20230324
  Receipt Date: 20230324
  Transmission Date: 20230418
  Serious: Yes (Life-Threatening, Hospitalization)
  Sender: FDA-Public Use
  Company Number: None

PATIENT
  Age: 4 Year
  Sex: Female
  Weight: 0.689 kg

DRUGS (5)
  1. OMEPRAZOLE [Suspect]
     Active Substance: OMEPRAZOLE
     Indication: Eosinophilic oesophagitis
     Dosage: OTHER QUANTITY : 6 THROUGH GTUBE?FREQUENCY : TWICE A DAY?OTHER ROUTE : THROUGH GTUBE?
     Route: 050
     Dates: start: 20230318, end: 20230321
  2. Albuterol inhaler [Concomitant]
  3. FLOVENT HFA [Concomitant]
     Active Substance: FLUTICASONE PROPIONATE
  4. CYPROHEPTADINE [Concomitant]
     Active Substance: CYPROHEPTADINE
  5. MIRALAX [Concomitant]
     Active Substance: POLYETHYLENE GLYCOL 3350

REACTIONS (12)
  - Vomiting [None]
  - Unresponsive to stimuli [None]
  - Hypothermia [None]
  - Blood glucose increased [None]
  - Hypotension [None]
  - Mydriasis [None]
  - Abnormal behaviour [None]
  - Somnolence [None]
  - Product dispensing error [None]
  - Product colour issue [None]
  - Product label issue [None]
  - Therapy cessation [None]

NARRATIVE: CASE EVENT DATE: 20230318
